FAERS Safety Report 8395154-9 (Version None)
Quarter: 2012Q2

REPORT INFORMATION
  Report Type: 
  Country: None (occurrence: None)
  Receive Date: 20120530
  Receipt Date: 20120524
  Transmission Date: 20120825
  Serious: Yes (Hospitalization, Other)
  Sender: FDA-Public Use
  Company Number: CN-PFIZER INC-2012125602

PATIENT
  Age: 80 Year
  Sex: Male

DRUGS (18)
  1. DIOVAN [Concomitant]
     Dosage: 80 MG, ONE TABLET ONE HOUR AFTER BREAKFAST
     Dates: end: 20060927
  2. ASPIRIN [Concomitant]
     Dosage: 100 MG, AFTER DINNER DAILY
     Dates: start: 20060928, end: 20120517
  3. METOPROLOL TARTRATE [Concomitant]
     Dosage: 12.5 MG, AFTER GETTING UP AND AT 1500 PM DAILY
     Dates: start: 20120518
  4. IRBESARTAN [Concomitant]
     Dosage: 0.15 G, AT 1500 PM DAILY
     Dates: start: 20120518
  5. IMDUR [Concomitant]
     Dosage: 30MG (HALF TABLET) BEFORE BREAKFAST DAILY
     Dates: start: 20120518
  6. MADOPAR [Concomitant]
     Indication: PARKINSON'S DISEASE
     Dosage: UNK
  7. PLAVIX [Concomitant]
     Dosage: 75 MG, ONE TABLET AFTER BREAKFAST
     Route: 048
     Dates: end: 20040524
  8. LIPITOR [Suspect]
     Dosage: 10 MG, AFTER DINNER
     Route: 048
     Dates: end: 20040524
  9. PRAMIPEXOLE DIHYDROCHLORIDE [Concomitant]
     Indication: PARKINSON'S DISEASE
  10. ISOSORBIDE DINITRATE [Concomitant]
     Dosage: 10 MG, AFTER EACH MEAL FOR THREE MEALS
  11. IRBESARTAN [Concomitant]
     Dosage: 0.15 G, BEFORE BREAKFAST DAILY
     Dates: start: 20060928, end: 20120517
  12. IMDUR [Concomitant]
     Dosage: 20 MG IN MORNING AND EVENING
     Dates: start: 20060928, end: 20120517
  13. LIPITOR [Suspect]
     Dosage: 10 MG, AFTER DINNER EVERY OTHER DAY
     Route: 048
     Dates: start: 20040525
  14. METOPROLOL TARTRATE [Concomitant]
     Dosage: 12.5 MG, AFTER EACH MEAL FOR THREE MEALS
     Dates: end: 20040524
  15. METOPROLOL TARTRATE [Concomitant]
     Dosage: 12.5 MG, IN MORNING AND EVENING
     Dates: start: 20040525, end: 20060927
  16. ASPIRIN [Concomitant]
     Dosage: 100 MG AFTER BREAKFAST
     Dates: end: 20060927
  17. METOPROLOL TARTRATE [Concomitant]
     Dosage: 12.5 MG, IN MORNING AND EVENING RESPECTIVELY
     Dates: start: 20060928, end: 20120517
  18. VASTAREL [Concomitant]
     Dosage: 20 MG, AFTER EACH MEAL FOR THREE MEALS

REACTIONS (4)
  - CORONARY ARTERY RESTENOSIS [None]
  - HEADACHE [None]
  - EXTRASYSTOLES [None]
  - BLOOD PRESSURE INCREASED [None]
